FAERS Safety Report 8885864 (Version 1)
Quarter: 2012Q4

REPORT INFORMATION
  Report Type: Report from Study
  Country: DE (occurrence: DE)
  Receive Date: 20121105
  Receipt Date: 20121105
  Transmission Date: 20130627
  Serious: Yes (Hospitalization)
  Sender: FDA-Public Use
  Company Number: PHHO2011DE08506

PATIENT
  Age: 85 Year
  Sex: Female
  Weight: 81 kg

DRUGS (2)
  1. ALISKIREN [Suspect]
     Indication: CARDIAC FAILURE
     Route: 048
     Dates: start: 20110214
  2. PHENPROCOUMON [Concomitant]

REACTIONS (2)
  - Dehydration [Unknown]
  - Renal failure [Unknown]
